FAERS Safety Report 19909302 (Version 1)
Quarter: 2021Q4

REPORT INFORMATION
  Report Type: Spontaneous
  Country: US (occurrence: US)
  Receive Date: 20211001
  Receipt Date: 20211001
  Transmission Date: 20220303
  Serious: No
  Sender: FDA-Public Use
  Company Number: US-AMARIN PHARMA, INC.-2021AMR000170

PATIENT
  Age: 70 Year
  Sex: Male

DRUGS (4)
  1. VASCEPA [Suspect]
     Active Substance: ICOSAPENT ETHYL
     Indication: High density lipoprotein increased
     Route: 048
     Dates: start: 2019
  2. VASCEPA [Suspect]
     Active Substance: ICOSAPENT ETHYL
     Indication: Low density lipoprotein increased
  3. ROSUVASTATIN [Concomitant]
     Active Substance: ROSUVASTATIN
     Indication: Product used for unknown indication
     Route: 048
     Dates: start: 202006
  4. ATORVASTATIN [Concomitant]
     Active Substance: ATORVASTATIN
     Indication: Product used for unknown indication
     Dates: start: 2015, end: 202006

REACTIONS (4)
  - Gastrointestinal hypomotility [Unknown]
  - Therapeutic response unexpected [Unknown]
  - Intentional underdose [Recovered/Resolved]
  - Diarrhoea [Recovered/Resolved]
